FAERS Safety Report 19484984 (Version 1)
Quarter: 2021Q3

REPORT INFORMATION
  Report Type: Report from Study
  Country: CA (occurrence: CA)
  Receive Date: 20210701
  Receipt Date: 20210701
  Transmission Date: 20211014
  Serious: Yes (Other)
  Sender: FDA-Public Use
  Company Number: CA-BIOGEN-2021BI01015439

PATIENT
  Age: 45 Year
  Sex: Male

DRUGS (4)
  1. FAMPYRA [Suspect]
     Active Substance: DALFAMPRIDINE
     Route: 065
     Dates: start: 20210528, end: 20210612
  2. FAMPYRA [Suspect]
     Active Substance: DALFAMPRIDINE
     Route: 065
     Dates: start: 20210613
  3. PLEGRIDY [Suspect]
     Active Substance: PEGINTERFERON BETA-1A
     Indication: RELAPSING-REMITTING MULTIPLE SCLEROSIS
     Route: 065
     Dates: start: 20160815
  4. FAMPYRA [Suspect]
     Active Substance: DALFAMPRIDINE
     Indication: MULTIPLE SCLEROSIS
     Route: 048
     Dates: start: 20210220, end: 20210520

REACTIONS (10)
  - Underdose [Recovered/Resolved]
  - Blood pressure increased [Recovered/Resolved with Sequelae]
  - Dyspnoea [Unknown]
  - Insomnia [Recovered/Resolved with Sequelae]
  - Peripheral venous disease [Recovered/Resolved with Sequelae]
  - Palpitations [Unknown]
  - Thrombosis [Recovered/Resolved with Sequelae]
  - Anxiety [Unknown]
  - Oedema [Recovered/Resolved with Sequelae]
  - Chest discomfort [Unknown]

NARRATIVE: CASE EVENT DATE: 2021
